FAERS Safety Report 8773159 (Version 1)
Quarter: 2012Q4

REPORT INFORMATION
  Report Type: 
  Country: US (occurrence: US)
  Receive Date: 20120907
  Receipt Date: 20120907
  Transmission Date: 20130627
  Serious: Yes (Hospitalization, Other)
  Sender: FDA-Public Use
  Company Number: US-JNJFOC-20120815038

PATIENT
  Sex: Female
  Weight: 57.61 kg

DRUGS (6)
  1. TOPAMAX [Suspect]
     Indication: MIGRAINE PROPHYLAXIS
     Route: 048
  2. TOPAMAX [Suspect]
     Indication: MIGRAINE PROPHYLAXIS
     Route: 048
  3. TOPIRAMATE [Suspect]
     Indication: MIGRAINE PROPHYLAXIS
     Route: 048
  4. THYROID, ARMOUR [Concomitant]
     Indication: HYPOTHYROIDISM
     Route: 048
  5. THYROID, ARMOUR [Concomitant]
     Indication: HYPOTHYROIDISM
     Route: 048
  6. VICODIN [Concomitant]
     Indication: PAIN
     Dosage: as needed
     Route: 048
     Dates: start: 2010

REACTIONS (4)
  - Meniscus injury [Recovered/Resolved]
  - Irritable bowel syndrome [Not Recovered/Not Resolved]
  - Arthritis [Not Recovered/Not Resolved]
  - Migraine [Recovered/Resolved]
